FAERS Safety Report 11129838 (Version 1)
Quarter: 2015Q2

REPORT INFORMATION
  Report Type: Spontaneous
  Country: US (occurrence: US)
  Receive Date: 20150521
  Receipt Date: 20150521
  Transmission Date: 20150821
  Serious: No
  Sender: FDA-Public Use
  Company Number: US-MALLINCKRODT-QSC-2014-0331

PATIENT
  Age: 54 Year
  Sex: Female
  Weight: 86.17 kg

DRUGS (1)
  1. H.P. ACTHAR [Suspect]
     Active Substance: CORTICOTROPIN
     Indication: MULTIPLE SCLEROSIS
     Dosage: 40 UNITS, BID
     Route: 058
     Dates: start: 20140513

REACTIONS (3)
  - Limb discomfort [Unknown]
  - Nervousness [Unknown]
  - Visual impairment [Unknown]

NARRATIVE: CASE EVENT DATE: 20140519
